FAERS Safety Report 18065431 (Version 4)
Quarter: 2020Q4

REPORT INFORMATION
  Report Type: Spontaneous
  Country: FR (occurrence: FR)
  Receive Date: 20200724
  Receipt Date: 20201027
  Transmission Date: 20210113
  Serious: Yes (Hospitalization)
  Sender: FDA-Public Use
  Company Number: NVSC2020FR199192

PATIENT
  Age: 59 Year
  Sex: Female
  Weight: 49 kg

DRUGS (14)
  1. RANITIDINE. [Suspect]
     Active Substance: RANITIDINE
     Indication: LUNG ADENOCARCINOMA
     Dosage: 2 DF, QD
     Route: 048
     Dates: start: 20200604, end: 20200606
  2. POLARAMINE [Concomitant]
     Active Substance: DEXCHLORPHENIRAMINE MALEATE
     Indication: CHEMOTHERAPY SIDE EFFECT PROPHYLAXIS
     Dosage: 5 MG, ONCE
     Route: 042
     Dates: start: 20200603, end: 20200603
  3. PACLITAXEL. [Suspect]
     Active Substance: PACLITAXEL
     Indication: LUNG ADENOCARCINOMA
     Dosage: 266.5 MG
     Route: 042
     Dates: start: 20200603, end: 20200603
  4. RANITIDINE. [Suspect]
     Active Substance: RANITIDINE
     Indication: ORAL FUNGAL INFECTION
     Dosage: 580 MG, UNK
     Route: 042
     Dates: start: 20200603, end: 20200603
  5. RANITIDINE. [Suspect]
     Active Substance: RANITIDINE
     Dosage: 3 DF, QD
     Route: 048
     Dates: start: 20200330
  6. RANITIDINE. [Suspect]
     Active Substance: RANITIDINE
     Dosage: 200 MG, ONCE
     Route: 042
  7. RANITIDINE. [Suspect]
     Active Substance: RANITIDINE
     Dosage: 1 DF, QD
     Route: 048
     Dates: start: 20200605, end: 20200606
  8. EMEND [Suspect]
     Active Substance: APREPITANT
     Indication: PRODUCT USED FOR UNKNOWN INDICATION
     Dosage: 1 DF, QD (GELULE)
     Route: 048
     Dates: start: 20200605, end: 20200606
  9. FLUCONAZOLE. [Suspect]
     Active Substance: FLUCONAZOLE
     Indication: ORAL FUNGAL INFECTION
     Dosage: 200 MG, QD
     Route: 048
     Dates: start: 20200604, end: 20200609
  10. RANITIDINE. [Suspect]
     Active Substance: RANITIDINE
     Dosage: 200 MG, QD
     Route: 048
     Dates: start: 20200604, end: 20200609
  11. PRIMPERAN [Concomitant]
     Active Substance: METOCLOPRAMIDE HYDROCHLORIDE
     Indication: PRODUCT USED FOR UNKNOWN INDICATION
     Dosage: 3 DF, QD
     Route: 048
     Dates: start: 20200330
  12. CARBOPLATINE [Concomitant]
     Active Substance: CARBOPLATIN
     Indication: LUNG ADENOCARCINOMA
     Dosage: 580 MG, CYCLIC
     Route: 065
     Dates: start: 20200603, end: 20200603
  13. ZOPHREN [Concomitant]
     Active Substance: ONDANSETRON
     Indication: PRODUCT USED FOR UNKNOWN INDICATION
     Dosage: 2 DF, QD
     Route: 048
     Dates: start: 20200604, end: 20200606
  14. RANITIDINE. [Suspect]
     Active Substance: RANITIDINE
     Indication: CHEMOTHERAPY SIDE EFFECT PROPHYLAXIS
     Dosage: 200 MG, TOTAL
     Route: 042
     Dates: start: 20200603, end: 20200603

REACTIONS (4)
  - Rash [Recovering/Resolving]
  - Pruritus [Recovered/Resolved]
  - Rash maculo-papular [Recovered/Resolved]
  - Pyrexia [Recovered/Resolved]

NARRATIVE: CASE EVENT DATE: 20200606
